FAERS Safety Report 20256017 (Version 1)
Quarter: 2021Q4

REPORT INFORMATION
  Report Type: Spontaneous
  Country: US (occurrence: None)
  Receive Date: 20211229
  Receipt Date: 20211229
  Transmission Date: 20220303
  Serious: Yes (Hospitalization)
  Sender: FDA-Public Use
  Company Number: None

PATIENT
  Sex: Male
  Weight: 87 kg

DRUGS (2)
  1. CARBOPLATIN [Suspect]
     Active Substance: CARBOPLATIN
  2. PACLITAXEL (TAXOL) [Concomitant]

REACTIONS (10)
  - Dizziness [None]
  - Vision blurred [None]
  - Blood pressure decreased [None]
  - Dehydration [None]
  - Cardiac disorder [None]
  - Troponin increased [None]
  - Blood lactic acid increased [None]
  - Vomiting [None]
  - Acute kidney injury [None]
  - Hypomagnesaemia [None]

NARRATIVE: CASE EVENT DATE: 20211227
